FAERS Safety Report 26183703 (Version 1)
Quarter: 2025Q4

REPORT INFORMATION
  Report Type: Report from Study
  Country: US (occurrence: US)
  Receive Date: 20251221
  Receipt Date: 20251221
  Transmission Date: 20260118
  Serious: Yes (Other)
  Sender: ABBVIE
  Company Number: US-ABBVIE-6598507

PATIENT
  Sex: Female

DRUGS (1)
  1. HUMIRA [Suspect]
     Active Substance: ADALIMUMAB
     Indication: Product used for unknown indication
     Dosage: DOSE FORM: SOLUTION FOR INJECTION IN PRE-FILLED PEN?HUMIRA 40MG/0.4ML
     Route: 058

REACTIONS (2)
  - Colitis ischaemic [Unknown]
  - Illness [Unknown]
